FAERS Safety Report 7371838-6 (Version None)
Quarter: 2011Q1

REPORT INFORMATION
  Report Type: 
  Country: None (occurrence: None)
  Receive Date: 20110310
  Receipt Date: 20110222
  Transmission Date: 20110831
  Serious: Yes (Other)
  Sender: FDA-Public Use
  Company Number: 2011SP007950

PATIENT
  Age: 29 Year
  Sex: Female

DRUGS (2)
  1. TEMODAR [Suspect]
     Indication: BRAIN NEOPLASM
     Dates: start: 20081101
  2. TEMODAR [Suspect]
     Indication: BRAIN NEOPLASM
     Dates: start: 20080101

REACTIONS (5)
  - THROAT TIGHTNESS [None]
  - RASH [None]
  - HYPERSENSITIVITY [None]
  - URTICARIA [None]
  - DYSPNOEA [None]
